FAERS Safety Report 6803494-7 (Version None)
Quarter: 2010Q2

REPORT INFORMATION
  Report Type: 
  Country: None (occurrence: None)
  Receive Date: 20100628
  Receipt Date: 20100618
  Transmission Date: 20101027
  Serious: Yes (Life-Threatening, Hospitalization)
  Sender: FDA-Public Use
  Company Number: GB-NOVOPROD-304439

PATIENT
  Sex: Male
  Weight: 110.1 kg

DRUGS (9)
  1. LIRAGLUTIDE [Suspect]
     Indication: TYPE 2 DIABETES MELLITUS
     Dosage: 1.8 MG, QD
     Route: 058
     Dates: start: 20080812, end: 20100211
  2. METFORMIN HCL [Concomitant]
     Indication: TYPE 2 DIABETES MELLITUS
     Dosage: 2 G, QD
     Dates: start: 20050929
  3. SIMVASTATIN [Concomitant]
     Indication: HYPERLIPIDAEMIA
     Dosage: 40 MG, QD
     Route: 048
     Dates: start: 20051007
  4. ASPIRIN [Concomitant]
     Indication: CARDIOVASCULAR DISORDER
     Dosage: 75 MG, QD
     Route: 048
     Dates: start: 20060511
  5. EZETIMIBE [Concomitant]
     Indication: HYPERLIPIDAEMIA
     Dosage: 10 MG, QD
     Route: 048
     Dates: start: 20080701
  6. TADALAFIL [Concomitant]
     Indication: ERECTILE DYSFUNCTION
     Dosage: UNK
     Route: 048
     Dates: start: 20060511
  7. CLOBETASONE [Concomitant]
     Indication: DERMATITIS
     Dosage: 1 UNK, BID
     Route: 061
  8. BISOPROLOL FUMARATE [Concomitant]
     Dosage: 1.25 MG, QD
     Route: 048
  9. RAMIPRIL [Concomitant]
     Dosage: 10 MG, QD
     Route: 048

REACTIONS (1)
  - CARDIAC FAILURE [None]
